FAERS Safety Report 7568957-8 (Version None)
Quarter: 2011Q2

REPORT INFORMATION
  Report Type: 
  Country: None (occurrence: None)
  Receive Date: 20110623
  Receipt Date: 20110615
  Transmission Date: 20111010
  Serious: Yes (Hospitalization)
  Sender: FDA-Public Use
  Company Number: US-B.I. PHARMACEUTICALS,INC./RIDGEFIELD-2011-BP-14404BP

PATIENT
  Sex: Male
  Weight: 86 kg

DRUGS (20)
  1. PRADAXA [Suspect]
     Indication: ATRIAL FIBRILLATION
     Dosage: 300 MG
     Route: 048
     Dates: start: 20101201, end: 20110603
  2. MULTI-VITAMIN [Concomitant]
  3. ZYLOPRIM [Concomitant]
     Dates: start: 20040101
  4. ADVAIR DISKUS 100/50 [Concomitant]
  5. TYLENOL-500 [Concomitant]
     Indication: PYREXIA
  6. POTASSIUM CHLORIDE [Concomitant]
     Dosage: 40 MEQ
  7. TYLENOL W/ CODEINE NO. 3 [Concomitant]
     Indication: MUSCULOSKELETAL PAIN
  8. TYLENOL W/ CODEINE NO. 3 [Concomitant]
     Indication: PAIN
  9. LIPITOR [Concomitant]
  10. TYLENOL-500 [Concomitant]
     Indication: PAIN
     Route: 048
  11. ATORVASTATIN [Concomitant]
     Dates: start: 20030101
  12. LASIX [Concomitant]
  13. VERAPAMIL EXTENDED-RELEASE [Concomitant]
     Dosage: 240 MG
  14. ACETAMINOPHEN [Concomitant]
  15. ALBUTEROL SULFATE AUTOHALER [Concomitant]
     Dates: start: 20020101
  16. LANOXIN [Concomitant]
     Dates: start: 20020101
  17. MIRALAX [Concomitant]
  18. SINGULAIR [Concomitant]
  19. MILK OF MAGNESIA TAB [Concomitant]
     Indication: CONSTIPATION
     Route: 048
  20. VENTOLIN HFA [Concomitant]
     Indication: DYSPNOEA

REACTIONS (1)
  - TRANSIENT ISCHAEMIC ATTACK [None]
